FAERS Safety Report 22822036 (Version 9)
Quarter: 2025Q4

REPORT INFORMATION
  Report Type: Spontaneous
  Country: US (occurrence: US)
  Receive Date: 20230814
  Receipt Date: 20251020
  Transmission Date: 20260118
  Serious: Yes (Other)
  Sender: XERIS PHARMACEUTICALS
  Company Number: US-XERIS PHARMACEUTICALS-2023XER02069

PATIENT
  Sex: Male
  Weight: 68.934 kg

DRUGS (18)
  1. RECORLEV [Suspect]
     Active Substance: LEVOKETOCONAZOLE
     Indication: Cushing^s syndrome
     Dosage: UNK
     Route: 048
     Dates: start: 20230626, end: 2023
  2. RECORLEV [Suspect]
     Active Substance: LEVOKETOCONAZOLE
     Dosage: 300 MG, 2X/DAY (AT BREAKFAST AND AT DINNER)
     Route: 048
     Dates: start: 2023, end: 202309
  3. RECORLEV [Suspect]
     Active Substance: LEVOKETOCONAZOLE
     Dosage: 1 TABLET (150 MG), 4X/DAY (EVERY 4 HOURS)
     Route: 048
     Dates: start: 202309, end: 20231119
  4. RECORLEV [Suspect]
     Active Substance: LEVOKETOCONAZOLE
     Dosage: 3 TABLETS (450 MG), 2X/DAY
     Route: 048
     Dates: start: 20231120
  5. RECORLEV [Suspect]
     Active Substance: LEVOKETOCONAZOLE
     Dosage: ONE TABLET (150 MG), 1X/DAY
     Route: 048
     Dates: start: 20251003
  6. AMLODIPINE [Concomitant]
     Active Substance: AMLODIPINE BESYLATE
  7. JARDIANCE [Concomitant]
     Active Substance: EMPAGLIFLOZIN
  8. LEVOTHYROXINE [Concomitant]
     Active Substance: LEVOTHYROXINE
  9. LISINOPRIL [Concomitant]
     Active Substance: LISINOPRIL
  10. METFORMIN [Concomitant]
     Active Substance: METFORMIN HYDROCHLORIDE
  11. DOXEPIN [Concomitant]
     Active Substance: DOXEPIN
  12. GLIPIZIDE [Concomitant]
     Active Substance: GLIPIZIDE
  13. ASPIRIN [Concomitant]
     Active Substance: ASPIRIN
  14. TYLENOL [Concomitant]
     Active Substance: ACETAMINOPHEN
  15. ALEVE [Concomitant]
     Active Substance: NAPROXEN SODIUM
  16. ZOLOFT [Concomitant]
     Active Substance: SERTRALINE HYDROCHLORIDE
     Dosage: UNK
     Dates: start: 202308
  17. AMBIEN [Concomitant]
     Active Substance: ZOLPIDEM TARTRATE
     Dosage: UNK
  18. AMBIEN [Concomitant]
     Active Substance: ZOLPIDEM TARTRATE
     Dosage: DOWN TO 1/2 PILL

REACTIONS (11)
  - Prostate cancer [Unknown]
  - Nephrolithiasis [Unknown]
  - Asthenia [Not Recovered/Not Resolved]
  - Hypersomnia [Not Recovered/Not Resolved]
  - Ligament sprain [Unknown]
  - Eye infection [Recovered/Resolved]
  - Depressed mood [Unknown]
  - Fatigue [Not Recovered/Not Resolved]
  - Urinary tract infection [Recovered/Resolved]
  - Terminal insomnia [Unknown]
  - Unevaluable event [Unknown]

NARRATIVE: CASE EVENT DATE: 20230101
